FAERS Safety Report 19207366 (Version 1)
Quarter: 2021Q2

REPORT INFORMATION
  Report Type: Spontaneous
  Country: US (occurrence: US)
  Receive Date: 20210503
  Receipt Date: 20210503
  Transmission Date: 20210717
  Serious: No
  Sender: FDA-Public Use
  Company Number: US-BIOGEN-2020BI00847055

PATIENT
  Age: 56 Year
  Sex: Female

DRUGS (3)
  1. VUMERITY [Suspect]
     Active Substance: DIROXIMEL FUMARATE
     Dosage: STARTING DOSE
     Route: 048
     Dates: start: 20200202
  2. VUMERITY [Suspect]
     Active Substance: DIROXIMEL FUMARATE
     Indication: MULTIPLE SCLEROSIS
     Dosage: STARTING DOSE
     Route: 065
     Dates: start: 20200122
  3. VUMERITY [Suspect]
     Active Substance: DIROXIMEL FUMARATE
     Route: 048
     Dates: start: 20200131

REACTIONS (15)
  - Gait disturbance [Unknown]
  - Nausea [Recovered/Resolved]
  - Underdose [Not Recovered/Not Resolved]
  - Dizziness [Unknown]
  - Periarthritis [Unknown]
  - Muscle spasms [Not Recovered/Not Resolved]
  - Limb discomfort [Recovered/Resolved]
  - Syncope [Unknown]
  - Visual acuity reduced [Unknown]
  - Muscular weakness [Recovered/Resolved]
  - Back pain [Not Recovered/Not Resolved]
  - Headache [Unknown]
  - Fatigue [Unknown]
  - Fall [Recovered/Resolved]
  - Multiple sclerosis [Unknown]

NARRATIVE: CASE EVENT DATE: 20200131
